FAERS Safety Report 8242813-4 (Version None)
Quarter: 2012Q1

REPORT INFORMATION
  Report Type: 
  Country: None (occurrence: None)
  Receive Date: 20120329
  Receipt Date: 20120321
  Transmission Date: 20120608
  Serious: Yes (Other)
  Sender: FDA-Public Use
  Company Number: PHHY2012NL025997

PATIENT
  Sex: Male

DRUGS (4)
  1. CARBASALATE CALCIUM [Concomitant]
     Dosage: 100 MG, UNK
     Dates: start: 20090801
  2. LOSARTAN POTASSIUM [Concomitant]
     Dosage: 50 MG, UNK
     Dates: start: 20080601
  3. OXAZEPAM [Concomitant]
     Dosage: 10 MG, UNK
     Dates: start: 20090101
  4. METOPROLOL SUCCINATE [Suspect]
     Indication: HYPERTENSION
     Dosage: 50 MG, UNK
     Route: 048
     Dates: start: 20120213, end: 20120215

REACTIONS (1)
  - ATRIAL FIBRILLATION [None]
